FAERS Safety Report 7344413-7 (Version None)
Quarter: 2011Q1

REPORT INFORMATION
  Report Type: 
  Country: None (occurrence: None)
  Receive Date: 20110310
  Receipt Date: 20110304
  Transmission Date: 20110831
  Serious: Yes (Other)
  Sender: FDA-Public Use
  Company Number: GXKR2011DE01145

PATIENT
  Sex: Male

DRUGS (2)
  1. ACE INHIBITOR NOS [Suspect]
     Route: 048
  2. TACROLIMUS [Suspect]
     Route: 065

REACTIONS (1)
  - ANGIOEDEMA [None]
